FAERS Safety Report 9051889 (Version 1)
Quarter: 2013Q1

REPORT INFORMATION
  Report Type: Spontaneous
  Country: US (occurrence: None)
  Receive Date: 20130130
  Receipt Date: 20130130
  Transmission Date: 20140127
  Serious: Yes (Other)
  Sender: FDA-Public Use
  Company Number: None

PATIENT
  Age: 59 Year
  Sex: Female
  Weight: 55.34 kg

DRUGS (2)
  1. CIPRO 500 MG COBRA [Suspect]
     Indication: PYREXIA
     Dates: start: 20120422, end: 20120424
  2. CIPRO 500 MG COBRA [Suspect]
     Indication: BLADDER DISORDER
     Dates: start: 20120422, end: 20120424

REACTIONS (3)
  - Vitreous floaters [None]
  - Anxiety [None]
  - Visual acuity reduced [None]
